FAERS Safety Report 15794243 (Version 1)
Quarter: 2019Q1

REPORT INFORMATION
  Report Type: Spontaneous
  Country: US (occurrence: US)
  Receive Date: 20190107
  Receipt Date: 20190107
  Transmission Date: 20190417
  Serious: Yes (Other)
  Sender: FDA-Public Use
  Company Number: US-GLAXOSMITHKLINE-US2019000927

PATIENT

DRUGS (1)
  1. EXCEDRIN [Suspect]
     Active Substance: ACETAMINOPHEN\ASPIRIN\CAFFEINE
     Indication: PRODUCT USED FOR UNKNOWN INDICATION
     Dosage: UNK

REACTIONS (7)
  - Drug dependence [Unknown]
  - Malaise [Unknown]
  - Overdose [Unknown]
  - Withdrawal syndrome [Unknown]
  - Unevaluable event [Unknown]
  - Oesophageal disorder [Unknown]
  - Medication overuse headache [Unknown]
